FAERS Safety Report 7280697-1 (Version None)
Quarter: 2011Q1

REPORT INFORMATION
  Report Type: 
  Country: None (occurrence: None)
  Receive Date: 20110208
  Receipt Date: 20110204
  Transmission Date: 20110831
  Serious: Yes (Hospitalization, Congenital Anomaly)
  Sender: FDA-Public Use
  Company Number: A0912312A

PATIENT
  Sex: Female

DRUGS (2)
  1. INDOMETHACIN [Concomitant]
     Indication: POLYHYDRAMNIOS
     Route: 064
  2. PAXIL [Suspect]
     Indication: STRESS
     Route: 064
     Dates: start: 19940101

REACTIONS (9)
  - SUPRAVENTRICULAR TACHYCARDIA [None]
  - DRUG EXPOSURE DURING PREGNANCY [None]
  - PULSELESS ELECTRICAL ACTIVITY [None]
  - INTESTINAL ATRESIA [None]
  - POLYHYDRAMNIOS [None]
  - VIITH NERVE PARALYSIS [None]
  - ATRIAL FIBRILLATION [None]
  - WOLFF-PARKINSON-WHITE SYNDROME [None]
  - PATENT DUCTUS ARTERIOSUS [None]
